FAERS Safety Report 10088293 (Version 1)
Quarter: 2014Q2

REPORT INFORMATION
  Report Type: Spontaneous
  Country: US (occurrence: US)
  Receive Date: 20140421
  Receipt Date: 20140421
  Transmission Date: 20141212
  Serious: No
  Sender: FDA-Public Use
  Company Number: US-009507513-1404USA008966

PATIENT
  Age: 16 Year
  Sex: 0

DRUGS (2)
  1. REBETOL [Suspect]
     Indication: HEPATITIS C
  2. PEGINTRON [Suspect]
     Indication: HEPATITIS C

REACTIONS (1)
  - Drug ineffective [Unknown]
